FAERS Safety Report 14847734 (Version 2)
Quarter: 2018Q3

REPORT INFORMATION
  Report Type: Spontaneous
  Country: US (occurrence: US)
  Receive Date: 20180504
  Receipt Date: 20180704
  Transmission Date: 20181010
  Serious: Yes (Other)
  Sender: FDA-Public Use
  Company Number: US-UCBSA-2018018417

PATIENT
  Age: 67 Year
  Sex: Male

DRUGS (1)
  1. CIMZIA [Suspect]
     Active Substance: CERTOLIZUMAB PEGOL
     Indication: PRODUCT USED FOR UNKNOWN INDICATION
     Dosage: 400 MG, EV 4 WEEKS (NDC#: 50474071079)
     Route: 058
     Dates: start: 20180403

REACTIONS (2)
  - Condition aggravated [Unknown]
  - Injection site pain [Unknown]

NARRATIVE: CASE EVENT DATE: 201804
